FAERS Safety Report 7937232-1 (Version None)
Quarter: 2011Q4

REPORT INFORMATION
  Report Type: 
  Country: None (occurrence: None)
  Receive Date: 20111123
  Receipt Date: 20111114
  Transmission Date: 20120403
  Serious: Yes (Hospitalization)
  Sender: FDA-Public Use
  Company Number: JP-GLAXOSMITHKLINE-B0763442A

PATIENT
  Age: 81 Year
  Sex: Female

DRUGS (7)
  1. PEROSPIRONE [Suspect]
     Indication: ANXIETY
     Dosage: 8MG PER DAY
     Route: 048
  2. CHLORPROMAZINE HYDROCHLORIDE [Concomitant]
     Dosage: 25MG PER DAY
     Route: 065
  3. RISPERIDONE [Concomitant]
     Dosage: 1MG PER DAY
     Route: 065
  4. OLANZAPINE [Concomitant]
     Route: 048
  5. PAXIL [Suspect]
     Indication: PERSECUTORY DELUSION
     Dosage: 10MG PER DAY
     Route: 048
  6. TRIAZOLAM [Concomitant]
     Dosage: .125MG PER DAY
     Route: 048
  7. OMEPRAZOLE [Concomitant]
     Dosage: 10MG PER DAY
     Route: 048

REACTIONS (12)
  - HEART RATE INCREASED [None]
  - SEROTONIN SYNDROME [None]
  - HYPERREFLEXIA [None]
  - TREMOR [None]
  - TACHYCARDIA [None]
  - OEDEMA PERIPHERAL [None]
  - CARDIOMEGALY [None]
  - BRAIN NATRIURETIC PEPTIDE INCREASED [None]
  - IRRITABILITY [None]
  - CARDIAC FAILURE [None]
  - ANXIETY [None]
  - RESTLESSNESS [None]
